FAERS Safety Report 23942937 (Version 3)
Quarter: 2025Q1

REPORT INFORMATION
  Report Type: Spontaneous
  Country: US (occurrence: US)
  Receive Date: 20240605
  Receipt Date: 20250103
  Transmission Date: 20250409
  Serious: No
  Sender: SANOFI AVENTIS
  Company Number: US-SA-SAC20240531000297

PATIENT
  Age: 3 Year
  Sex: Male

DRUGS (4)
  1. DUPIXENT [Suspect]
     Active Substance: DUPILUMAB
     Indication: Dermatitis atopic
     Dosage: 300 MG, Q4W
     Route: 058
     Dates: start: 202309
  2. DUPIXENT [Suspect]
     Active Substance: DUPILUMAB
     Indication: Dermatitis allergic
  3. AZELASTINE [Concomitant]
     Active Substance: AZELASTINE
  4. PREDNISOLONE [Concomitant]
     Active Substance: PREDNISOLONE

REACTIONS (5)
  - Eyelid skin dryness [Unknown]
  - Eczema [Unknown]
  - Erythema of eyelid [Unknown]
  - Conjunctivitis [Unknown]
  - Food allergy [Unknown]

NARRATIVE: CASE EVENT DATE: 20241101
